FAERS Safety Report 7283195-4 (Version None)
Quarter: 2011Q1

REPORT INFORMATION
  Report Type: 
  Country: None (occurrence: None)
  Receive Date: 20110209
  Receipt Date: 20110127
  Transmission Date: 20110831
  Serious: Yes (Disabling, Other)
  Sender: FDA-Public Use
  Company Number: PHHY2011AU03622

PATIENT
  Sex: Female

DRUGS (2)
  1. SANDOSTATIN LAR [Suspect]
     Indication: ACROMEGALY
     Dosage: 20 MG, EVERY 4 WEEKS
     Route: 030
     Dates: start: 20101214
  2. MINIRIN [Concomitant]
     Indication: DIABETES INSIPIDUS
     Dosage: 100 MG, BID
     Dates: start: 20101001

REACTIONS (1)
  - SYNCOPE [None]
